FAERS Safety Report 22366048 (Version 1)
Quarter: 2023Q2

REPORT INFORMATION
  Report Type: Spontaneous
  Country: US (occurrence: US)
  Receive Date: 20230525
  Receipt Date: 20230525
  Transmission Date: 20230721
  Serious: No
  Sender: FDA-Public Use
  Company Number: US-ABBVIE-5179241

PATIENT
  Sex: Male

DRUGS (1)
  1. IMBRUVICA [Suspect]
     Active Substance: IBRUTINIB
     Indication: Product used for unknown indication
     Dosage: 560 TAKE 1 TABLET BY MOUTH ONCE DAILY. TABLET SHOULD BE TAKEN WITH A GLASS OF WATER.
     Route: 048

REACTIONS (1)
  - Cognitive disorder [Not Recovered/Not Resolved]
